FAERS Safety Report 5385784-0 (Version None)
Quarter: 2007Q3

REPORT INFORMATION
  Report Type: 
  Country: None (occurrence: None)
  Receive Date: 20070712
  Receipt Date: 20070427
  Transmission Date: 20080115
  Serious: Yes (Hospitalization)
  Sender: FDA-Public Use
  Company Number: FR-PFIZER INC-2007055870

PATIENT
  Age: 72 Year
  Sex: Female

DRUGS (4)
  1. LOGIFLOX [Suspect]
     Indication: URINARY TRACT INFECTION
     Dosage: DAILY DOSE:400MG
     Route: 048
     Dates: start: 20061003, end: 20061003
  2. INDAPAMIDE [Concomitant]
  3. ODRIK [Concomitant]
  4. POTASSIUM CHLORIDE [Concomitant]

REACTIONS (5)
  - ABDOMINAL PAIN UPPER [None]
  - CONFUSIONAL STATE [None]
  - HYPOKALAEMIA [None]
  - HYPONATRAEMIA [None]
  - NAUSEA [None]
